FAERS Safety Report 7898777-6 (Version None)
Quarter: 2011Q4

REPORT INFORMATION
  Report Type: 
  Country: None (occurrence: None)
  Receive Date: 20111107
  Receipt Date: 20110821
  Transmission Date: 20120403
  Serious: No
  Sender: FDA-Public Use
  Company Number: US-ABBOTT-11P-163-0848206-00

PATIENT
  Sex: Male

DRUGS (3)
  1. PLAVIX [Concomitant]
     Indication: PRODUCT USED FOR UNKNOWN INDICATION
  2. BENICAR [Concomitant]
     Indication: PRODUCT USED FOR UNKNOWN INDICATION
  3. TRICOR [Suspect]
     Indication: BLOOD TRIGLYCERIDES INCREASED
     Dates: start: 20110801, end: 20110801

REACTIONS (1)
  - TENDON PAIN [None]
